FAERS Safety Report 7407227-5 (Version None)
Quarter: 2011Q2

REPORT INFORMATION
  Report Type: 
  Country: None (occurrence: None)
  Receive Date: 20110411
  Receipt Date: 20110405
  Transmission Date: 20111010
  Serious: Yes (Hospitalization)
  Sender: FDA-Public Use
  Company Number: US-GILEAD-2011-0035599

PATIENT
  Age: 39 Year
  Sex: Female

DRUGS (9)
  1. K-DUR [Concomitant]
  2. LASIX [Concomitant]
  3. LETAIRIS [Suspect]
     Route: 048
  4. IMURAN [Concomitant]
  5. VENTAVIS [Concomitant]
  6. COUMADIN [Concomitant]
  7. TRACLEER [Concomitant]
  8. DIGOXIN [Concomitant]
  9. LETAIRIS [Suspect]
     Indication: PULMONARY HYPERTENSION
     Route: 048
     Dates: start: 20090923, end: 20110201

REACTIONS (4)
  - ANAEMIA [None]
  - FLUID RETENTION [None]
  - ABDOMINAL DISTENSION [None]
  - HEPATOMEGALY [None]
